FAERS Safety Report 4309907-7 (Version None)
Quarter: 2004Q1

REPORT INFORMATION
  Report Type: 
  Country: None (occurrence: None)
  Receive Date: 20040303
  Receipt Date: 20040123
  Transmission Date: 20041129
  Serious: No
  Sender: FDA-Public Use
  Company Number: US-BRISTOL-MYERS SQUIBB COMPANY-12485884

PATIENT
  Age: 21 Year
  Sex: Male

DRUGS (5)
  1. ABILIFY [Suspect]
     Indication: BIPOLAR DISORDER
     Route: 048
  2. SEROQUEL [Concomitant]
     Dosage: DECREASING DOSES: GRADUALLY DECREASED FROM 200 MG THREE TIMES DAILY TO 200 MG DAILY.
  3. TRILEPTAL [Concomitant]
  4. NAVANE [Concomitant]
  5. ANTIBIOTIC [Concomitant]

REACTIONS (2)
  - INSOMNIA [None]
  - NAUSEA [None]
